FAERS Safety Report 8344027-6 (Version None)
Quarter: 2012Q2

REPORT INFORMATION
  Report Type: 
  Country: None (occurrence: None)
  Receive Date: 20120508
  Receipt Date: 20120503
  Transmission Date: 20120825
  Serious: No
  Sender: FDA-Public Use
  Company Number: US-TEVA-336704USA

PATIENT
  Sex: Female
  Weight: 58.112 kg

DRUGS (4)
  1. ADVAIR DISKUS 100/50 [Concomitant]
     Indication: ASTHMA
  2. ZYRTEC [Concomitant]
     Indication: MULTIPLE ALLERGIES
  3. SINGULAIR [Concomitant]
     Indication: MULTIPLE ALLERGIES
  4. PLAN B ONE-STEP [Suspect]
     Indication: POST COITAL CONTRACEPTION
     Dosage: 1.5 MILLIGRAM;
     Route: 048
     Dates: start: 20120414, end: 20120414

REACTIONS (3)
  - ABDOMINAL PAIN [None]
  - BREAST DISCOMFORT [None]
  - MENSTRUATION DELAYED [None]
